FAERS Safety Report 13891221 (Version 1)
Quarter: 2017Q3

REPORT INFORMATION
  Report Type: Spontaneous
  Country: FR (occurrence: FR)
  Receive Date: 20170822
  Receipt Date: 20170822
  Transmission Date: 20171127
  Serious: Yes (Hospitalization)
  Sender: FDA-Public Use
  Company Number: FR-MYLANLABS-2017M1050938

PATIENT

DRUGS (12)
  1. CEFTRIAXONE PANPHARMA [Concomitant]
     Active Substance: CEFTRIAXONE
     Indication: PULMONARY INFARCTION
     Dosage: 1 G, UNK
     Route: 030
     Dates: start: 20170428
  2. VALIUM [Concomitant]
     Active Substance: DIAZEPAM
     Indication: ALCOHOL DETOXIFICATION
     Dosage: 10 MG, TID
     Route: 048
     Dates: start: 20170423
  3. ACTISKENAN [Concomitant]
     Active Substance: MORPHINE SULFATE
     Indication: PULMONARY PAIN
     Dosage: HIGH DOSES (ON THE DEMAND)
     Route: 048
     Dates: start: 20170423
  4. VITAMIN B6 [Concomitant]
     Active Substance: PYRIDOXINE HYDROCHLORIDE
     Indication: ALCOHOL DETOXIFICATION
     Dosage: 2 DF, QD
     Route: 048
     Dates: start: 20170423
  5. DOLIPRANE [Concomitant]
     Active Substance: ACETAMINOPHEN
     Indication: PULMONARY PAIN
     Dosage: ON DEMAND
     Route: 048
     Dates: start: 20170423
  6. ELIQUIS [Concomitant]
     Active Substance: APIXABAN
     Indication: PULMONARY EMBOLISM
     Dosage: 10 MG, BID
     Route: 048
     Dates: start: 20170423
  7. SKENAN [Concomitant]
     Active Substance: MORPHINE SULFATE
     Indication: PULMONARY PAIN
     Dosage: 2 DF, QD
     Route: 048
     Dates: start: 20170423
  8. VITAMINE B1 [Concomitant]
     Active Substance: THIAMINE HYDROCHLORIDE
     Indication: ALCOHOL DETOXIFICATION
     Dosage: 2 DF, QD
     Route: 048
     Dates: start: 20170423
  9. NEFOPAM MYLAN [Concomitant]
     Active Substance: NEFOPAM
     Indication: PULMONARY PAIN
     Dosage: ON DEMAND
     Route: 048
     Dates: start: 20170423
  10. LEVOFLOXACINE MYLAN 500 MG, COMPRIM? PELLICUL? S?CABLE [Suspect]
     Active Substance: LEVOFLOXACIN
     Indication: PULMONARY INFARCTION
     Dosage: 1 DF, UNK
     Route: 048
     Dates: start: 20170428, end: 20170429
  11. AUGMENTIN [Concomitant]
     Active Substance: AMOXICILLIN\CLAVULANATE POTASSIUM
     Indication: PULMONARY INFARCTION
     Dosage: 1 G, TID
     Route: 042
     Dates: start: 20170423, end: 20170428
  12. ELIQUIS [Concomitant]
     Active Substance: APIXABAN
     Dosage: 5 MG, BID
     Route: 048

REACTIONS (2)
  - Rash morbilliform [Recovered/Resolved]
  - Pruritus [Recovered/Resolved]

NARRATIVE: CASE EVENT DATE: 20170429
